FAERS Safety Report 18300643 (Version 2)
Quarter: 2020Q4

REPORT INFORMATION
  Report Type: Spontaneous
  Country: FR (occurrence: FR)
  Receive Date: 20200923
  Receipt Date: 20201009
  Transmission Date: 20210113
  Serious: Yes (Disabling, Other)
  Sender: FDA-Public Use
  Company Number: NVSC2020FR239048

PATIENT
  Age: 12 Year
  Sex: Female

DRUGS (10)
  1. EVEROLIMUS. [Suspect]
     Active Substance: EVEROLIMUS
     Indication: EPILEPSY
     Dosage: 5 MG, QD
     Route: 065
  2. AMOXICILLIN. [Concomitant]
     Active Substance: AMOXICILLIN
     Indication: PNEUMONIA
     Dosage: AT THE END OF THE THIRD MONTH OF EVEROLIMUS TREATMENT DUE TO SUSPICION OF PNEUMONIA
     Route: 065
  3. EVEROLIMUS. [Suspect]
     Active Substance: EVEROLIMUS
     Dosage: 10 MG, QD
     Route: 065
  4. LAMOTRIGINE. [Concomitant]
     Active Substance: LAMOTRIGINE
     Indication: EPILEPSY
     Dosage: UNK
     Route: 065
  5. SALBUTAMOL [Concomitant]
     Active Substance: ALBUTEROL
     Indication: PNEUMONIA
     Dosage: AT THE END OF THE THIRD MONTH OF EVEROLIMUS TREATMENT DUE TO SUSPICION OF PNEUMONIA
     Route: 065
  6. EVEROLIMUS. [Suspect]
     Active Substance: EVEROLIMUS
     Dosage: 7.5 MG, QD
     Route: 065
  7. LEVOTHYROXINE. [Concomitant]
     Active Substance: LEVOTHYROXINE
     Indication: HYPOTHYROIDISM
     Dosage: UNK
     Route: 065
  8. EVEROLIMUS. [Suspect]
     Active Substance: EVEROLIMUS
     Dosage: 12.5 MG, QD
     Route: 065
  9. LACOSAMIDE. [Concomitant]
     Active Substance: LACOSAMIDE
     Indication: EPILEPSY
     Dosage: UNK
     Route: 065
  10. EVEROLIMUS. [Suspect]
     Active Substance: EVEROLIMUS
     Dosage: LOW-DOSE TREATMENT WAS INITIATED (5 MG) AND PROGRESSIVELY INCREASED (VARIATING UP TO 12.5 MG/DAY) TO
     Route: 048

REACTIONS (18)
  - Condition aggravated [Not Recovered/Not Resolved]
  - Asthenia [Not Recovered/Not Resolved]
  - Off label use [Unknown]
  - Leukopenia [Recovered/Resolved]
  - Alopecia [Recovered/Resolved]
  - Epistaxis [Unknown]
  - Drug ineffective for unapproved indication [Unknown]
  - Neutropenia [Recovered/Resolved]
  - Pyrexia [Unknown]
  - Rhinorrhoea [Unknown]
  - Intentional product use issue [Unknown]
  - Behaviour disorder [Recovering/Resolving]
  - Drug ineffective [Unknown]
  - Pneumonia [Unknown]
  - Product use in unapproved indication [Unknown]
  - Diarrhoea [Unknown]
  - Acne [Recovered/Resolved]
  - Salivary hypersecretion [Unknown]
